FAERS Safety Report 8174837-X (Version None)
Quarter: 2012Q1

REPORT INFORMATION
  Report Type: 
  Country: None (occurrence: None)
  Receive Date: 20120229
  Receipt Date: 20111201
  Transmission Date: 20120608
  Serious: No
  Sender: FDA-Public Use
  Company Number: US-GLAXOSMITHKLINE-A0899763A

PATIENT
  Sex: Female

DRUGS (2)
  1. VALTREX [Suspect]
     Indication: ILL-DEFINED DISORDER
     Dosage: 1CAPL PER DAY
     Route: 048
     Dates: start: 20020101, end: 20100101
  2. VALACYCLOVIR [Suspect]
     Indication: ILL-DEFINED DISORDER
     Route: 048
     Dates: start: 20100101

REACTIONS (5)
  - THERAPEUTIC RESPONSE DECREASED [None]
  - CONDITION AGGRAVATED [None]
  - ILL-DEFINED DISORDER [None]
  - STRESS [None]
  - PAIN [None]
